FAERS Safety Report 6298185-8 (Version None)
Quarter: 2009Q3

REPORT INFORMATION
  Report Type: 
  Country: None (occurrence: None)
  Receive Date: 20090805
  Receipt Date: 20090731
  Transmission Date: 20100115
  Serious: Yes (Other)
  Sender: FDA-Public Use
  Company Number: JP-AVENTIS-200912159JP

PATIENT
  Sex: Male

DRUGS (3)
  1. TAXOTERE [Suspect]
     Route: 041
  2. CISPLATIN [Suspect]
  3. 5-FU                               /00098801/ [Concomitant]

REACTIONS (1)
  - HYPONATRAEMIA [None]
